FAERS Safety Report 21151152 (Version 1)
Quarter: 2022Q3

REPORT INFORMATION
  Report Type: Spontaneous
  Country: HR (occurrence: HR)
  Receive Date: 20220730
  Receipt Date: 20220730
  Transmission Date: 20221027
  Serious: Yes (Other)
  Sender: FDA-Public Use
  Company Number: None

PATIENT
  Age: 35 Year
  Sex: Male
  Weight: 85 kg

DRUGS (4)
  1. QUETIAPINE [Suspect]
     Active Substance: QUETIAPINE
     Indication: Product used for unknown indication
     Dosage: UNK - SEVERAL TBL 150 MG , DURATION : 1 DAY
     Dates: start: 20220531, end: 20220531
  2. ALPRAZOLAM [Suspect]
     Active Substance: ALPRAZOLAM
     Indication: Product used for unknown indication
     Dosage: 6 TABLETS X 0.25 MG , UNIT DOSE : 1.5 MG , FREQUENCY TIME : 1 DAY , DURATION : 1 DAY
     Dates: start: 20220531, end: 20220531
  3. ZOLPIDEM TARTRATE [Suspect]
     Active Substance: ZOLPIDEM TARTRATE
     Indication: Product used for unknown indication
     Dosage: 7 TABLETS X 10 MG , UNIT DOSE :70 MG  , FREQUENCY TIME : 1 DAY  , DURATION : 1 DAY
     Dates: start: 20220531, end: 20220531
  4. DULOXETINE HYDROCHLORIDE [Suspect]
     Active Substance: DULOXETINE HYDROCHLORIDE
     Indication: Product used for unknown indication
     Dosage: UNK - SEVERAL TBL 30 MG , DURATION : 1 DAY
     Dates: start: 20220531, end: 20220531

REACTIONS (3)
  - Somnolence [Unknown]
  - Intentional overdose [Unknown]
  - Suicide attempt [Unknown]

NARRATIVE: CASE EVENT DATE: 20220531
